FAERS Safety Report 7865075-6 (Version None)
Quarter: 2011Q4

REPORT INFORMATION
  Report Type: 
  Country: None (occurrence: None)
  Receive Date: 20111028
  Receipt Date: 20101004
  Transmission Date: 20120403
  Serious: No
  Sender: FDA-Public Use
  Company Number: US-GLAXOSMITHKLINE-A0885726A

PATIENT
  Sex: Male

DRUGS (3)
  1. ALLERGY MEDICATION [Concomitant]
  2. ALBUTEROL [Concomitant]
     Route: 055
  3. ADVAIR DISKUS 100/50 [Suspect]
     Indication: ASTHMA
     Dosage: 1PUFF TWICE PER DAY
     Route: 055
     Dates: start: 20010101

REACTIONS (4)
  - INHALATION THERAPY [None]
  - ADVERSE EVENT [None]
  - PRODUCT QUALITY ISSUE [None]
  - DRUG INEFFECTIVE [None]
